FAERS Safety Report 24436791 (Version 1)
Quarter: 2024Q4

REPORT INFORMATION
  Report Type: Spontaneous
  Country: US (occurrence: US)
  Receive Date: 20241015
  Receipt Date: 20241015
  Transmission Date: 20250115
  Serious: Yes (Life-Threatening, Hospitalization)
  Sender: MYLAN
  Company Number: US-MYLANLABS-2024M1091387

PATIENT
  Age: 72 Year
  Sex: Female

DRUGS (6)
  1. AMIODARONE [Interacting]
     Active Substance: AMIODARONE
     Indication: Atrial fibrillation
     Dosage: UNK
     Route: 065
  2. DIGOXIN [Interacting]
     Active Substance: DIGOXIN
     Indication: Heart failure with preserved ejection fraction
     Dosage: UNK
     Route: 065
  3. LOSARTAN [Concomitant]
     Active Substance: LOSARTAN
     Indication: Hypertension
     Dosage: UNK
     Route: 065
  4. HYDROCHLOROTHIAZIDE [Concomitant]
     Active Substance: HYDROCHLOROTHIAZIDE
     Indication: Hypertension
     Dosage: UNK
     Route: 065
  5. FUROSEMIDE [Concomitant]
     Active Substance: FUROSEMIDE
     Indication: Acute kidney injury
     Dosage: UNK
     Route: 065
  6. APIXABAN [Concomitant]
     Active Substance: APIXABAN
     Indication: Anticoagulant therapy
     Dosage: UNK
     Route: 065

REACTIONS (6)
  - Toxicity to various agents [Recovering/Resolving]
  - Bradycardia [Recovering/Resolving]
  - Condition aggravated [Recovering/Resolving]
  - Cardiac dysfunction [Recovering/Resolving]
  - Renal impairment [Recovering/Resolving]
  - Labelled drug-drug interaction medication error [Recovering/Resolving]
